FAERS Safety Report 10652469 (Version 2)
Quarter: 2014Q4

REPORT INFORMATION
  Report Type: Report from Study
  Country: US (occurrence: US)
  Receive Date: 20141215
  Receipt Date: 20141215
  Transmission Date: 20150529
  Serious: Yes (Hospitalization)
  Sender: FDA-Public Use
  Company Number: US-PFIZER INC-2002104229US

PATIENT
  Age: 68 Year
  Sex: Male
  Weight: 92.4 kg

DRUGS (11)
  1. SPORANOX [Suspect]
     Active Substance: ITRACONAZOLE\SODIUM CHLORIDE
     Indication: PROPHYLAXIS
     Dosage: 200 MG, QD
     Route: 048
     Dates: start: 200112, end: 20020430
  2. ACYCLOVIR. [Concomitant]
     Active Substance: ACYCLOVIR
     Dosage: 800 MG, UNK
     Route: 048
     Dates: start: 200111, end: 20020430
  3. BUMEX [Concomitant]
     Active Substance: BUMETANIDE
     Dosage: 2 MG, UNK
     Route: 048
     Dates: start: 200110, end: 20020430
  4. PRINIVIL [Concomitant]
     Active Substance: LISINOPRIL
     Dosage: 10 MG, UNK
     Route: 048
     Dates: start: 200109, end: 20020430
  5. METOPROLOL [Concomitant]
     Active Substance: METOPROLOL
     Dosage: 25 MG, UNK
     Route: 048
     Dates: start: 200110, end: 20020430
  6. NORVASC [Concomitant]
     Active Substance: AMLODIPINE BESYLATE
     Dosage: 5 MG, UNK
     Route: 048
     Dates: start: 200111, end: 20020430
  7. K-DUR [Concomitant]
     Active Substance: POTASSIUM CHLORIDE
     Dosage: 20 MEQ, UNK
     Route: 048
     Dates: start: 200109, end: 20020430
  8. SUNITINIB MALATE [Suspect]
     Active Substance: SUNITINIB MALATE
     Indication: ACUTE MYELOID LEUKAEMIA
     Dosage: 350 MG, CYCLIC
     Route: 048
     Dates: start: 20020430
  9. FOLIC ACID. [Concomitant]
     Active Substance: FOLIC ACID
     Dosage: 1 MG, UNK
     Route: 048
     Dates: start: 200110, end: 20020430
  10. PRILOSEC [Concomitant]
     Active Substance: OMEPRAZOLE MAGNESIUM
     Dosage: 20 MG, UNK
     Route: 048
     Dates: start: 200111, end: 20020430
  11. BACTRIM [Concomitant]
     Active Substance: SULFAMETHOXAZOLE\TRIMETHOPRIM
     Dosage: UNK
     Dates: start: 20020425, end: 20020429

REACTIONS (3)
  - Ventricular tachycardia [Recovered/Resolved]
  - Electrocardiogram QT prolonged [Recovered/Resolved]
  - Ventricular extrasystoles [Recovered/Resolved]

NARRATIVE: CASE EVENT DATE: 20020430
